FAERS Safety Report 21979583 (Version 2)
Quarter: 2023Q1

REPORT INFORMATION
  Report Type: Spontaneous
  Country: CZ (occurrence: CZ)
  Receive Date: 20230210
  Receipt Date: 20230216
  Transmission Date: 20230417
  Serious: Yes (Other)
  Sender: FDA-Public Use
  Company Number: CZ-002147023-NVSC2023CZ009851

PATIENT
  Age: 57 Year
  Sex: Female
  Weight: 70 kg

DRUGS (4)
  1. PACLITAXEL [Suspect]
     Active Substance: PACLITAXEL
     Indication: Fallopian tube cancer stage III
     Dosage: 175 MILLIGRAM/SQ. METER(175 MG/M2 (6X IN TOTAL))
     Route: 065
     Dates: start: 202111, end: 202203
  2. PACLITAXEL [Suspect]
     Active Substance: PACLITAXEL
     Indication: Benign ovarian tumour
  3. CARBOPLATIN [Suspect]
     Active Substance: CARBOPLATIN
     Indication: Fallopian tube cancer stage III
     Dosage: UNK (AUC (AREA UNDER THE CURVE) 5, 6X IN TOTAL)
     Route: 065
     Dates: start: 202111, end: 202203
  4. CARBOPLATIN [Suspect]
     Active Substance: CARBOPLATIN
     Dosage: UNK, AUC (AREA UNDER THE CURVE) 5, A TOTAL OF 6 TIMES
     Route: 065
     Dates: start: 202111, end: 202203

REACTIONS (2)
  - Neuropathy peripheral [Unknown]
  - Product use in unapproved indication [Unknown]
